FAERS Safety Report 23401403 (Version 2)
Quarter: 2024Q1

REPORT INFORMATION
  Report Type: Spontaneous
  Country: US (occurrence: US)
  Receive Date: 20240115
  Receipt Date: 20240228
  Transmission Date: 20240409
  Serious: No
  Sender: FDA-Public Use
  Company Number: US-LUPIN PHARMACEUTICALS INC.-2024-00170

PATIENT

DRUGS (1)
  1. ALBUTEROL SULFATE [Suspect]
     Active Substance: ALBUTEROL SULFATE
     Indication: Asthma
     Dosage: UNK (6 TIMES A WEEK)
     Dates: start: 20230908

REACTIONS (3)
  - Wrong technique in product usage process [Unknown]
  - Product expiration date issue [Unknown]
  - No adverse event [Unknown]
